FAERS Safety Report 6917233-2 (Version None)
Quarter: 2010Q3

REPORT INFORMATION
  Report Type: 
  Country: None (occurrence: None)
  Receive Date: 20100804
  Receipt Date: 20100723
  Transmission Date: 20110219
  Serious: Yes (Other)
  Sender: FDA-Public Use
  Company Number: 2010-2642

PATIENT
  Age: 58 Year
  Sex: Male

DRUGS (5)
  1. APO-GO AMPOULES (APO-GO) (APOMORPHINE HYDROCHLORIDE) (APOMORPHINE HYDR [Suspect]
     Indication: PARKINSON'S DISEASE
     Dosage: (4.5 MG,), SUBCUTANEOUS
     Route: 058
     Dates: start: 20100415, end: 20100527
  2. PROTIUM 40MG GASTRORESISTANT (PANTOPRAZOLE SODIUM) [Concomitant]
  3. MOTILIUM [Concomitant]
  4. SINEMET CR 25/100MG (SINEMET) [Concomitant]
  5. STALEVO (STALEVO) [Concomitant]

REACTIONS (3)
  - DRUG INEFFECTIVE [None]
  - PRURITUS [None]
  - RASH ERYTHEMATOUS [None]
